FAERS Safety Report 7838418-7 (Version None)
Quarter: 2011Q4

REPORT INFORMATION
  Report Type: 
  Country: None (occurrence: None)
  Receive Date: 20111024
  Receipt Date: 20111018
  Transmission Date: 20120403
  Serious: Yes (Other)
  Sender: FDA-Public Use
  Company Number: US-MERCK-1012USA02527

PATIENT
  Age: 58 Year
  Sex: Female

DRUGS (9)
  1. MOBIC [Concomitant]
     Route: 065
  2. VITAMIN E [Concomitant]
     Route: 065
  3. SYNTHROID [Concomitant]
     Route: 065
  4. LYSINE [Concomitant]
     Route: 065
  5. FOSAMAX [Suspect]
     Indication: OSTEOPENIA
     Route: 048
     Dates: start: 20050701, end: 20101201
  6. VITAMINS (UNSPECIFIED) [Concomitant]
     Route: 065
  7. ATENOLOL [Concomitant]
     Route: 065
  8. VITAMIN D (UNSPECIFIED) [Concomitant]
     Route: 065
  9. OSTEO-BI-FLEX [Concomitant]
     Route: 065
     Dates: start: 20060101

REACTIONS (6)
  - FOOT FRACTURE [None]
  - ARTHROPATHY [None]
  - FIBULA FRACTURE [None]
  - TIBIA FRACTURE [None]
  - HIP FRACTURE [None]
  - FEMUR FRACTURE [None]
